FAERS Safety Report 23404564 (Version 1)
Quarter: 2024Q1

REPORT INFORMATION
  Report Type: Spontaneous
  Country: JP (occurrence: JP)
  Receive Date: 20240116
  Receipt Date: 20240116
  Transmission Date: 20240410
  Serious: Yes (Death, Hospitalization)
  Sender: FDA-Public Use
  Company Number: JP-DSJP-DSJ-2023-146836

PATIENT
  Age: 92 Year
  Sex: Female
  Weight: 36 kg

DRUGS (5)
  1. EDOXABAN TOSYLATE [Suspect]
     Active Substance: EDOXABAN TOSYLATE
     Indication: Deep vein thrombosis
     Dosage: 30 MG
     Route: 048
     Dates: end: 20151105
  2. EDOXABAN TOSYLATE [Suspect]
     Active Substance: EDOXABAN TOSYLATE
     Dosage: 30 MG, QD
     Route: 048
     Dates: start: 20151119
  3. ASPIRIN [Suspect]
     Active Substance: ASPIRIN
     Indication: Myocardial infarction
     Dosage: 100 MG, QD
     Route: 048
  4. ASPIRIN [Suspect]
     Active Substance: ASPIRIN
     Dosage: 100 MG, QD
     Route: 048
     Dates: start: 20151119
  5. KALLIDINOGENASE [Concomitant]
     Active Substance: KALLIDINOGENASE
     Indication: Hypertension
     Dosage: 50 IU, TID
     Route: 048

REACTIONS (2)
  - Diverticulum intestinal haemorrhagic [Recovered/Resolved]
  - Urinary tract infection [Fatal]

NARRATIVE: CASE EVENT DATE: 20151101
